FAERS Safety Report 22252406 (Version 1)
Quarter: 2023Q2

REPORT INFORMATION
  Report Type: Report from Study
  Country: US (occurrence: US)
  Receive Date: 20230426
  Receipt Date: 20230426
  Transmission Date: 20230722
  Serious: Yes (Other)
  Sender: FDA-Public Use
  Company Number: US-ABBVIE-4283601

PATIENT
  Age: 34 Year
  Sex: Female

DRUGS (4)
  1. SKYRIZI [Suspect]
     Active Substance: RISANKIZUMAB-RZAA
     Indication: Crohn^s disease
     Dosage: WEEK 12
     Route: 058
     Dates: start: 20230405
  2. SKYRIZI [Suspect]
     Active Substance: RISANKIZUMAB-RZAA
     Indication: Crohn^s disease
     Dosage: WEEK 0
     Route: 042
     Dates: start: 20221228, end: 20230125
  3. SKYRIZI [Suspect]
     Active Substance: RISANKIZUMAB-RZAA
     Indication: Crohn^s disease
     Dosage: WEEK 4/THERAPY CESSATION DATE SHOULD BE AT LEAST 2023.
     Route: 042
     Dates: start: 20230208
  4. SKYRIZI [Suspect]
     Active Substance: RISANKIZUMAB-RZAA
     Indication: Crohn^s disease
     Dosage: WEEK 8/THERAPY CESSATION DATE SHOULD BE AT LEAST 2023.
     Route: 042
     Dates: start: 20230308

REACTIONS (5)
  - Ligament rupture [Unknown]
  - Pruritus [Recovered/Resolved]
  - Fatigue [Recovered/Resolved]
  - Gastric disorder [Unknown]
  - Injection site pain [Unknown]

NARRATIVE: CASE EVENT DATE: 20221228
